FAERS Safety Report 9774238 (Version 1)
Quarter: 2013Q4

REPORT INFORMATION
  Report Type: Spontaneous
  Country: FR (occurrence: FR)
  Receive Date: 20131220
  Receipt Date: 20131220
  Transmission Date: 20140711
  Serious: Yes (Death)
  Sender: FDA-Public Use
  Company Number: FR-JNJFOC-20131208396

PATIENT
  Age: 81 Year
  Sex: Female

DRUGS (5)
  1. XARELTO [Suspect]
     Indication: PRODUCT USED FOR UNKNOWN INDICATION
     Route: 048
     Dates: end: 20130929
  2. IMOVANE [Concomitant]
     Route: 065
  3. EUPANTOL [Concomitant]
     Route: 065
  4. PROCORALAN [Concomitant]
     Route: 065
  5. RAMIPRIL [Concomitant]
     Route: 065

REACTIONS (1)
  - Cerebrovascular accident [Fatal]
